FAERS Safety Report 6583299-5 (Version None)
Quarter: 2010Q1

REPORT INFORMATION
  Report Type: 
  Country: None (occurrence: None)
  Receive Date: 20100216
  Receipt Date: 20100209
  Transmission Date: 20100710
  Serious: Yes (Death, Hospitalization)
  Sender: FDA-Public Use
  Company Number: B0633807A

PATIENT
  Sex: Female
  Weight: 70 kg

DRUGS (10)
  1. AUGMENTIN [Suspect]
     Indication: SKIN INFECTION
     Dosage: 1G TWICE PER DAY
     Route: 048
     Dates: start: 20091119, end: 20091129
  2. CIPROXIN [Suspect]
     Indication: SKIN INFECTION
     Dosage: 1G PER DAY
     Route: 048
     Dates: start: 20091205, end: 20091222
  3. AMOXICILLIN AND CLAVULANATE POTASSIUM [Suspect]
     Indication: SKIN INFECTION
     Dosage: 1G TWICE PER DAY
     Route: 048
     Dates: end: 20091229
  4. SPIRONOLACTONE [Concomitant]
     Dosage: 150MG PER DAY
  5. FERRUM HAUSMANN [Concomitant]
     Dosage: 100MG PER DAY
     Route: 048
  6. ELTROXIN [Concomitant]
     Dosage: .05MG PER DAY
     Route: 048
  7. CONCOR PLUS [Concomitant]
     Dosage: 5MG PER DAY
  8. MAGNESIUM DIASPORAL [Concomitant]
     Dosage: 300MG PER DAY
  9. NOVALGIN [Concomitant]
  10. ZOLPIDEM [Concomitant]
     Dosage: 10MG PER DAY

REACTIONS (10)
  - BLOOD CREATININE INCREASED [None]
  - DIARRHOEA [None]
  - MULTI-ORGAN FAILURE [None]
  - RASH [None]
  - RASH PRURITIC [None]
  - SEPSIS [None]
  - STEVENS-JOHNSON SYNDROME [None]
  - SUPERINFECTION [None]
  - TOXIC EPIDERMAL NECROLYSIS [None]
  - VOMITING [None]
